FAERS Safety Report 5717529-6 (Version None)
Quarter: 2008Q2

REPORT INFORMATION
  Report Type: 
  Country: None (occurrence: None)
  Receive Date: 20080425
  Receipt Date: 20080421
  Transmission Date: 20081010
  Serious: Yes (Other)
  Sender: FDA-Public Use
  Company Number: US-BAYER-200812995NA

PATIENT
  Age: 65 Year
  Sex: Female

DRUGS (2)
  1. LEUKINE [Suspect]
     Indication: MYELODYSPLASTIC SYNDROME
     Route: 058
     Dates: start: 20070801, end: 20080123
  2. PROCRIT [Concomitant]
     Dates: start: 20061215

REACTIONS (2)
  - DIZZINESS [None]
  - SYNCOPE [None]
